FAERS Safety Report 9003639 (Version 2)
Quarter: 2013Q3

REPORT INFORMATION
  Report Type: Spontaneous
  Country: FR (occurrence: FR)
  Receive Date: 20130108
  Receipt Date: 20130726
  Transmission Date: 20140515
  Serious: Yes (Life-Threatening, Hospitalization, Other)
  Sender: FDA-Public Use
  Company Number: FR-PFIZER INC-2013001865

PATIENT
  Age: 66 Year
  Sex: Female

DRUGS (24)
  1. EFFEXOR LP [Suspect]
     Indication: DEPRESSIVE SYMPTOM
     Dosage: 37.5 MG, 1X/DAY
     Route: 048
     Dates: end: 20120722
  2. CILASTATIN, IMIPENEM PANPHARMA [Suspect]
     Indication: PYELONEPHRITIS
     Dosage: 500MG, 4X/DAY
     Route: 042
     Dates: start: 20120719, end: 20120729
  3. CILASTATIN, IMIPENEM PANPHARMA [Suspect]
     Dosage: 500 MG, 3X/DAY
     Route: 042
     Dates: start: 20120730, end: 20120731
  4. NEORAL [Suspect]
     Indication: RENAL TRANSPLANT
     Dosage: 125 MG, 1X/DAY
     Route: 048
     Dates: start: 2000
  5. TOPALGIC [Suspect]
     Indication: PAIN
     Dosage: 100 MG, 2X/DAY
     Route: 048
  6. ACUPAN [Suspect]
     Indication: PAIN
     Route: 042
  7. MERONEM [Concomitant]
     Indication: PYELONEPHRITIS
     Dosage: 500 MG, 3X/DAY
     Route: 042
     Dates: start: 20120731, end: 20120802
  8. CORTANCYL [Concomitant]
  9. HYDROCORTISONE ^ROUSSEL^ [Concomitant]
  10. ARANESP [Concomitant]
  11. CALTRATE [Concomitant]
  12. UN-ALFA [Concomitant]
  13. MIMPARA [Concomitant]
  14. LASILIX [Concomitant]
  15. DIFFU K [Concomitant]
  16. AMLOR [Concomitant]
  17. TENORMINE [Concomitant]
  18. CORDARONE [Concomitant]
  19. TAHOR [Concomitant]
  20. EUPANTOL [Concomitant]
  21. GAVISCON [Concomitant]
  22. MOTILIUM ^BYK GULDEN^ [Concomitant]
  23. DUPHALAC [Concomitant]
  24. CALCIPARIN [Concomitant]

REACTIONS (5)
  - Grand mal convulsion [Unknown]
  - Sepsis [Unknown]
  - Renal failure [Unknown]
  - Hyponatraemia [Unknown]
  - Hypocalcaemia [Unknown]
